FAERS Safety Report 9606710 (Version 2)
Quarter: 2014Q2

REPORT INFORMATION
  Report Type: Spontaneous
  Country: US (occurrence: US)
  Receive Date: 20131008
  Receipt Date: 20140519
  Transmission Date: 20141212
  Serious: No
  Sender: FDA-Public Use
  Company Number: US-AMGEN-USASP2013065312

PATIENT
  Age: 86 Year
  Sex: Female
  Weight: 68.93 kg

DRUGS (1)
  1. PROLIA [Suspect]
     Indication: OSTEOPOROSIS POSTMENOPAUSAL
     Dosage: 60 MG, Q6MO
     Route: 058
     Dates: start: 20111213, end: 20121218

REACTIONS (2)
  - Musculoskeletal stiffness [Unknown]
  - Mobility decreased [Unknown]
